FAERS Safety Report 19261529 (Version 1)
Quarter: 2021Q2

REPORT INFORMATION
  Report Type: Report from Study
  Country: BR (occurrence: BR)
  Receive Date: 20210515
  Receipt Date: 20210515
  Transmission Date: 20210717
  Serious: Yes (Hospitalization)
  Sender: FDA-Public Use
  Company Number: NVSC2021BR105228

PATIENT
  Sex: Female

DRUGS (1)
  1. DIOVAN [Suspect]
     Active Substance: VALSARTAN
     Indication: PRODUCT USED FOR UNKNOWN INDICATION
     Dosage: 320 MG (STARTED ABOUT 5 YEARS AGO)
     Route: 065

REACTIONS (3)
  - Psychotic disorder [Unknown]
  - Memory impairment [Unknown]
  - Speech disorder [Unknown]
